FAERS Safety Report 6983953-7 (Version None)
Quarter: 2010Q3

REPORT INFORMATION
  Report Type: 
  Country: None (occurrence: None)
  Receive Date: 20100914
  Receipt Date: 20090415
  Transmission Date: 20110219
  Serious: No
  Sender: FDA-Public Use
  Company Number: US-WYE-H08963009

PATIENT
  Sex: Female

DRUGS (1)
  1. TORISEL [Suspect]
     Indication: RENAL CELL CARCINOMA
     Dosage: 25 MG AT UNKNOWN FREQUENCY
     Route: 042
     Dates: start: 20080101

REACTIONS (2)
  - INTERSTITIAL LUNG DISEASE [None]
  - LUNG CONSOLIDATION [None]
